FAERS Safety Report 6763094-4 (Version None)
Quarter: 2010Q2

REPORT INFORMATION
  Report Type: 
  Country: None (occurrence: None)
  Receive Date: 20100609
  Receipt Date: 20100602
  Transmission Date: 20101027
  Serious: Yes (Disabling)
  Sender: FDA-Public Use
  Company Number: US-GENENTECH-302479

PATIENT
  Sex: Female
  Weight: 43.084 kg

DRUGS (4)
  1. XOLAIR [Suspect]
     Indication: ASTHMA
     Dosage: 300 MG, Q4W
     Route: 058
     Dates: start: 20050616
  2. XOLAIR [Suspect]
     Indication: IDIOPATHIC URTICARIA
     Dosage: 250 MG, Q4W
     Route: 058
  3. XOLAIR [Suspect]
     Dosage: 300 MG, Q4W
     Route: 058
  4. IMITREX [Concomitant]
     Indication: DRUG USE FOR UNKNOWN INDICATION

REACTIONS (1)
  - HEADACHE [None]
